FAERS Safety Report 18388803 (Version 2)
Quarter: 2020Q4

REPORT INFORMATION
  Report Type: Report from Study
  Country: MX (occurrence: MX)
  Receive Date: 20201015
  Receipt Date: 20201022
  Transmission Date: 20210114
  Serious: Yes (Other)
  Sender: FDA-Public Use
  Company Number: PHHY2018MX196971

PATIENT
  Sex: Male
  Weight: 72 kg

DRUGS (16)
  1. JANUVIA [Concomitant]
     Active Substance: SITAGLIPTIN PHOSPHATE
     Indication: DIABETES MELLITUS
     Dosage: 1 DF, QD (STARTED 10 YEARS AGO)
     Route: 048
  2. LUCENTIS [Suspect]
     Active Substance: RANIBIZUMAB
     Dosage: 1 DF, QMO
     Route: 047
     Dates: start: 2017
  3. BRUCEN [Concomitant]
     Dosage: 1 DF, QD (APPROXIMATLY 20 YEARS AGO)
     Route: 048
  4. GLIBENCLAMIDE [Concomitant]
     Active Substance: GLYBURIDE
     Indication: BLOOD GLUCOSE ABNORMAL
     Dosage: 2 (5ML), QD
     Route: 048
     Dates: start: 2000
  5. BRUCEN [Concomitant]
     Indication: DIABETES MELLITUS
     Dosage: 1 DF
     Route: 048
     Dates: start: 2002
  6. LUCENTIS [Suspect]
     Active Substance: RANIBIZUMAB
     Indication: RETINITIS
     Dosage: 0.5 MG, QMO
     Route: 031
     Dates: start: 20171229
  7. METFORMIN [Suspect]
     Active Substance: METFORMIN HYDROCHLORIDE
     Indication: DIABETES MELLITUS
     Dosage: 850 MG, BID (STARTED 10 YEARS AGO)
     Route: 048
     Dates: start: 2000
  8. INSULIN [Concomitant]
     Active Substance: INSULIN NOS
     Indication: DIABETES MELLITUS
     Dosage: 50 U, DAILY AT NIGHT  (STARTED 4 YEARS AGO)
     Route: 048
  9. LANTUS [Concomitant]
     Active Substance: INSULIN GLARGINE
     Indication: DIABETES MELLITUS
     Dosage: 1 DF, QD (APPROXIMATLY 3 YEARS AGO)
     Route: 030
  10. ZYMASE [Concomitant]
     Indication: PRODUCT USED FOR UNKNOWN INDICATION
     Dosage: 8 DF, QD
     Route: 047
     Dates: start: 2017
  11. GALVUS [Suspect]
     Active Substance: VILDAGLIPTIN
     Dosage: 1 DF (500 MG), QD (APPROXIMATLY 20 YEARS AGO)
     Route: 048
  12. LUCENTIS [Suspect]
     Active Substance: RANIBIZUMAB
     Dosage: 0.5 MG, QMO (IN BOTH EYES)
     Route: 031
     Dates: start: 201908
  13. LUCENTIS [Suspect]
     Active Substance: RANIBIZUMAB
     Dosage: 1 DF (TWICE A MONTH)
     Route: 047
  14. GALVUS [Suspect]
     Active Substance: VILDAGLIPTIN
     Indication: DIABETES MELLITUS
     Dosage: 1 DF, BID (STARTED 2 YEARS AGO)
     Route: 048
  15. VIGAMOXI [Concomitant]
     Active Substance: MOXIFLOXACIN
     Indication: EYE DISORDER
     Dosage: 1 ( 425 ML./05.0ML)
     Route: 047
  16. LANTUS [Concomitant]
     Active Substance: INSULIN GLARGINE
     Indication: BLOOD GLUCOSE ABNORMAL
     Dosage: UNK, QN
     Route: 058
     Dates: start: 2014

REACTIONS (17)
  - Product use in unapproved indication [Unknown]
  - Diarrhoea [Recovered/Resolved with Sequelae]
  - Vision blurred [Recovered/Resolved]
  - Off label use [Unknown]
  - Drug ineffective [Not Recovered/Not Resolved]
  - Renal disorder [Unknown]
  - Blood glucose increased [Recovered/Resolved with Sequelae]
  - Cataract [Not Recovered/Not Resolved]
  - Diarrhoea [Recovered/Resolved]
  - Gastrointestinal motility disorder [Unknown]
  - Abdominal discomfort [Unknown]
  - Vision blurred [Unknown]
  - Drug intolerance [Recovered/Resolved with Sequelae]
  - Eye inflammation [Not Recovered/Not Resolved]
  - Lacrimation increased [Recovered/Resolved]
  - Ocular hyperaemia [Recovered/Resolved]
  - Blood glucose increased [Recovering/Resolving]
